FAERS Safety Report 6319369-6 (Version None)
Quarter: 2009Q3

REPORT INFORMATION
  Report Type: 
  Country: None (occurrence: None)
  Receive Date: 20090822
  Receipt Date: 20080825
  Transmission Date: 20100115
  Serious: No
  Sender: FDA-Public Use
  Company Number: US-ABBOTT-08P-163-0472281-00

PATIENT
  Age: 55 Year
  Sex: Male
  Weight: 74.91 kg

DRUGS (8)
  1. NIASPAN [Suspect]
     Indication: BLOOD TRIGLYCERIDES INCREASED
     Route: 048
     Dates: start: 20080701
  2. LOSARTAN POTASSIUM [Concomitant]
     Indication: HYPERTENSION
     Route: 048
  3. LANSOPRAZOLE [Concomitant]
     Indication: HIATUS HERNIA
     Route: 048
  4. METOPROLOL [Concomitant]
     Indication: HYPERTENSION
     Route: 048
  5. FENOFIBRATE [Concomitant]
     Indication: BLOOD TRIGLYCERIDES INCREASED
     Route: 048
     Dates: start: 20080401
  6. VITAMIN B COMPLEX CAP [Concomitant]
     Indication: VITAMIN SUPPLEMENTATION
     Route: 048
  7. MENS VITAMINS [Concomitant]
     Indication: VITAMIN SUPPLEMENTATION
     Route: 048
  8. CIRRUS [Concomitant]
     Indication: HYPERSENSITIVITY
     Route: 048

REACTIONS (3)
  - DYSPNOEA [None]
  - FLUSHING [None]
  - PALPITATIONS [None]
